FAERS Safety Report 8649003 (Version 8)
Quarter: 2013Q3

REPORT INFORMATION
  Report Type: Spontaneous
  Country: CN (occurrence: CN)
  Receive Date: 20120704
  Receipt Date: 20130821
  Transmission Date: 20140515
  Serious: Yes (Life-Threatening, Hospitalization, Other)
  Sender: FDA-Public Use
  Company Number: PHHY2012CN056341

PATIENT
  Age: 69 Year
  Sex: Female

DRUGS (6)
  1. MIACALCIC [Suspect]
     Indication: OSTEOPOROSIS
     Dosage: 50 IU, QD
     Route: 058
     Dates: end: 20120704
  2. CALTRATE +D [Concomitant]
     Dosage: UNK UKN, UNK
     Route: 048
  3. LIPOSOLUBLE VIT D [Concomitant]
     Dosage: 10 ML
     Route: 042
  4. ALPHA D3 [Concomitant]
     Dosage: UNK UKN, UNK
     Route: 048
  5. METOCLOPRAMIDE [Concomitant]
     Dosage: UNK UKN, UNK
     Route: 030
  6. INDOMETACIN [Concomitant]
     Dosage: UNK UKN, UNK
     Route: 054

REACTIONS (24)
  - Lung infection [Recovering/Resolving]
  - Respiratory failure [Recovering/Resolving]
  - Pleural effusion [Recovering/Resolving]
  - Pyrexia [Recovering/Resolving]
  - Staphylococcal bacteraemia [Recovering/Resolving]
  - White blood cell count increased [Recovering/Resolving]
  - Alveolitis allergic [Recovering/Resolving]
  - Pulmonary oedema [Recovering/Resolving]
  - Breath sounds abnormal [Recovering/Resolving]
  - Chest discomfort [Recovering/Resolving]
  - Rash [Recovering/Resolving]
  - Nausea [Recovering/Resolving]
  - Vomiting [Recovering/Resolving]
  - Altered state of consciousness [Recovering/Resolving]
  - Haemoglobin decreased [Recovering/Resolving]
  - Hypothyroidism [Recovering/Resolving]
  - Hypoalbuminaemia [Recovering/Resolving]
  - Oedema [Recovering/Resolving]
  - Blood potassium decreased [Recovering/Resolving]
  - Blood glucose increased [Recovering/Resolving]
  - Limb discomfort [Recovering/Resolving]
  - Platelet count decreased [Unknown]
  - Blood pressure increased [Recovering/Resolving]
  - Dizziness [Recovering/Resolving]
